FAERS Safety Report 6164618-0 (Version None)
Quarter: 2009Q2

REPORT INFORMATION
  Report Type: 
  Country: None (occurrence: None)
  Receive Date: 20090423
  Receipt Date: 20090413
  Transmission Date: 20091009
  Serious: Yes (Other)
  Sender: FDA-Public Use
  Company Number: US-WYE-H08958409

PATIENT
  Age: 53 Year
  Sex: Female

DRUGS (5)
  1. ADVIL [Suspect]
     Indication: ABDOMINAL PAIN UPPER
     Dosage: 1-2 CAPSULES EVERY COUPLE OF DAYS
     Route: 048
  2. XANAX [Concomitant]
     Indication: ANXIETY
     Route: 048
     Dates: start: 20030101
  3. SYNTHROID [Concomitant]
     Indication: THYROID DISORDER
     Route: 048
  4. METOPROLOL SUCCINATE [Concomitant]
     Indication: HYPERTENSION
     Route: 048
     Dates: start: 20050101
  5. HYZAAR [Concomitant]
     Indication: HYPERTENSION
     Route: 048
     Dates: start: 20060101

REACTIONS (3)
  - EPISTAXIS [None]
  - GASTRIC NEOPLASM [None]
  - THERAPEUTIC RESPONSE UNEXPECTED [None]
